FAERS Safety Report 19609157 (Version 1)
Quarter: 2021Q3

REPORT INFORMATION
  Report Type: Spontaneous
  Country: US (occurrence: US)
  Receive Date: 20210726
  Receipt Date: 20210726
  Transmission Date: 20211014
  Serious: No
  Sender: FDA-Public Use
  Company Number: US-BIOGEN-2021BI01032260

PATIENT
  Sex: Female

DRUGS (1)
  1. TYSABRI [Suspect]
     Active Substance: NATALIZUMAB
     Indication: MULTIPLE SCLEROSIS
     Route: 065

REACTIONS (8)
  - Therapeutic product effect decreased [Unknown]
  - Paraesthesia [Unknown]
  - Motor dysfunction [Unknown]
  - Pain [Unknown]
  - Aphasia [Unknown]
  - Gait disturbance [Unknown]
  - Cognitive disorder [Unknown]
  - Dysarthria [Unknown]
